FAERS Safety Report 5939928-X (Version None)
Quarter: 2008Q4

REPORT INFORMATION
  Report Type: 
  Country: None (occurrence: None)
  Receive Date: 20081030
  Receipt Date: 20081030
  Transmission Date: 20090506
  Serious: Yes (Hospitalization)
  Sender: FDA-Public Use
  Company Number: None

PATIENT
  Age: 46 Year
  Sex: Female
  Weight: 99.7913 kg

DRUGS (4)
  1. ZONEGRAN [Suspect]
     Indication: MIGRAINE PROPHYLAXIS
     Dosage: 50 MG BID ORAL
     Route: 048
     Dates: start: 20071103, end: 20080406
  2. PRILOSEC [Concomitant]
  3. PROZAC [Concomitant]
  4. ZOMIG [Concomitant]

REACTIONS (4)
  - HAEMATURIA [None]
  - NEPHROLITHIASIS [None]
  - NO THERAPEUTIC RESPONSE [None]
  - PELVIC PAIN [None]
